FAERS Safety Report 8362769-3 (Version None)
Quarter: 2012Q2

REPORT INFORMATION
  Report Type: 
  Country: None (occurrence: None)
  Receive Date: 20120516
  Receipt Date: 20120508
  Transmission Date: 20120825
  Serious: Yes (Other)
  Sender: FDA-Public Use
  Company Number: PHHY2012JP035956

PATIENT
  Age: 63 Year
  Sex: Female

DRUGS (1)
  1. DIOVAN [Suspect]
     Dosage: 40 MG DAILY
     Route: 048

REACTIONS (2)
  - MELAENA [None]
  - BLOOD PRESSURE INCREASED [None]
